FAERS Safety Report 4980487-6 (Version None)
Quarter: 2006Q2

REPORT INFORMATION
  Report Type: 
  Country: None (occurrence: None)
  Receive Date: 20060424
  Receipt Date: 20060412
  Transmission Date: 20061013
  Serious: Yes (Death)
  Sender: FDA-Public Use
  Company Number: US-SANOFI-SYNTHELABO-A03200602332

PATIENT
  Sex: Female
  Weight: 63.49 kg

DRUGS (16)
  1. PLAVIX [Suspect]
     Indication: CEREBROVASCULAR ACCIDENT
     Route: 048
  2. FOSAMAX [Concomitant]
     Dosage: UNK
     Route: 048
  3. HUMALOG [Concomitant]
     Dosage: UNK
     Route: 048
  4. FUROSEMIDE [Concomitant]
     Dosage: UNK
     Route: 048
  5. K-DUR 10 [Concomitant]
     Dosage: UNK
     Route: 048
  6. TOPROL-XL [Concomitant]
     Dosage: UNK
     Route: 048
  7. ASPIRIN [Concomitant]
     Dosage: UNK
     Route: 048
  8. SYNTHROID [Concomitant]
     Dosage: UNK
     Route: 048
  9. NORVASC [Concomitant]
     Dosage: UNK
     Route: 048
  10. CARDURA [Concomitant]
     Dosage: UNK
     Route: 048
  11. COZAAR [Concomitant]
     Dosage: UNK
     Route: 048
  12. ZOCOR [Concomitant]
     Dosage: UNK
     Route: 048
  13. ALBUTEROL [Concomitant]
     Route: 048
  14. VICODIN [Concomitant]
     Route: 048
  15. PRILOSEC [Concomitant]
     Route: 048
  16. PROPRANOLOL [Concomitant]
     Dosage: UNK
     Route: 048

REACTIONS (1)
  - DEATH [None]
